FAERS Safety Report 15095913 (Version 1)
Quarter: 2018Q3

REPORT INFORMATION
  Report Type: Spontaneous
  Country: US (occurrence: US)
  Receive Date: 20180702
  Receipt Date: 20180702
  Transmission Date: 20181010
  Serious: No
  Sender: FDA-Public Use
  Company Number: US-GLENMARK PHARMACEUTICALS-2017GMK027718

PATIENT

DRUGS (2)
  1. MOMETASONE FUROATE CREAM USP [Suspect]
     Active Substance: MOMETASONE FUROATE
     Indication: RADIOTHERAPY TO BREAST
     Dosage: UNK, BID ON CHEST, BREAST, AND
     Route: 061
     Dates: start: 20170527, end: 20170529
  2. LETROZOLE. [Concomitant]
     Active Substance: LETROZOLE
     Indication: BREAST CANCER
     Dosage: UNK
     Route: 048

REACTIONS (6)
  - Inappropriate schedule of drug administration [Unknown]
  - Application site erythema [Not Recovered/Not Resolved]
  - Product administered at inappropriate site [Unknown]
  - Product physical issue [Unknown]
  - Application site pruritus [Recovered/Resolved]
  - Product use in unapproved indication [Unknown]

NARRATIVE: CASE EVENT DATE: 20170527
